FAERS Safety Report 6804365-2 (Version None)
Quarter: 2010Q2

REPORT INFORMATION
  Report Type: 
  Country: None (occurrence: None)
  Receive Date: 20100628
  Receipt Date: 20070619
  Transmission Date: 20101027
  Serious: Yes (Other)
  Sender: FDA-Public Use
  Company Number: US-PFIZER INC-2007018669

PATIENT
  Sex: Male
  Weight: 81.6 kg

DRUGS (6)
  1. GEODON [Suspect]
     Indication: ANXIETY
     Dates: start: 20040301, end: 20070313
  2. GEODON [Suspect]
     Indication: AGITATION
  3. GEODON [Suspect]
     Indication: AGGRESSION
  4. ALL OTHER THERAPEUTIC PRODUCTS [Concomitant]
  5. PAXIL [Concomitant]
  6. BUSPAR [Concomitant]

REACTIONS (3)
  - GENERAL PHYSICAL HEALTH DETERIORATION [None]
  - MUSCULOSKELETAL STIFFNESS [None]
  - SWOLLEN TONGUE [None]
